FAERS Safety Report 24375210 (Version 1)
Quarter: 2024Q3

REPORT INFORMATION
  Report Type: Spontaneous
  Country: CA (occurrence: CA)
  Receive Date: 20240928
  Receipt Date: 20240928
  Transmission Date: 20241017
  Serious: Yes (Hospitalization, Other)
  Sender: NOVITIUM PHARMA
  Company Number: CA-NOVITIUMPHARMA-2024CANVP02004

PATIENT
  Age: 61 Year
  Sex: Female

DRUGS (1)
  1. CARBAMAZEPINE [Suspect]
     Active Substance: CARBAMAZEPINE
     Indication: Product used for unknown indication
     Dosage: CONTROLLED RELEASE
     Route: 048

REACTIONS (7)
  - Generalised tonic-clonic seizure [Recovering/Resolving]
  - Lactic acidosis [Recovering/Resolving]
  - Encephalopathy [Recovering/Resolving]
  - Hypotension [Recovering/Resolving]
  - Toxicity to various agents [Unknown]
  - Intentional product misuse [Unknown]
  - Intentional overdose [Unknown]
